FAERS Safety Report 8482407-9 (Version None)
Quarter: 2012Q3

REPORT INFORMATION
  Report Type: 
  Country: None (occurrence: None)
  Receive Date: 20120702
  Receipt Date: 20120620
  Transmission Date: 20120928
  Serious: Yes (Hospitalization)
  Sender: FDA-Public Use
  Company Number: US-GLAXOSMITHKLINE-A0875650A

PATIENT
  Age: 76 Year
  Sex: Female
  Weight: 81.6 kg

DRUGS (2)
  1. AVANDIA [Suspect]
     Indication: DIABETES MELLITUS
     Dosage: 8MG PER DAY
     Route: 048
     Dates: start: 20010421, end: 20030502
  2. AVANDAMET [Suspect]
     Indication: DIABETES MELLITUS
     Route: 048
     Dates: start: 20030718, end: 20050209

REACTIONS (4)
  - MYOCARDIAL INFARCTION [None]
  - DIABETES MELLITUS INADEQUATE CONTROL [None]
  - VERTIGO [None]
  - HYPOGLYCAEMIA [None]
